FAERS Safety Report 7819087-9 (Version None)
Quarter: 2011Q4

REPORT INFORMATION
  Report Type: 
  Country: None (occurrence: None)
  Receive Date: 20111018
  Receipt Date: 20111013
  Transmission Date: 20120403
  Serious: Yes (Other)
  Sender: FDA-Public Use
  Company Number: GB-PERRIGO-11GB008637

PATIENT
  Age: 40 Year
  Sex: Male
  Weight: 93 kg

DRUGS (3)
  1. NAPROXEN SODIUM [Suspect]
     Indication: ARTHRALGIA
     Dosage: 500 MG, BID
     Route: 048
     Dates: start: 20110801
  2. TRAMADOL HCL [Concomitant]
     Indication: PAIN
     Dosage: 50 MG, BID
     Route: 048
  3. BECLOMETHASONE DIPROPIONATE [Concomitant]
     Indication: RHINITIS
     Dosage: UNK
     Route: 065

REACTIONS (4)
  - SWELLING FACE [None]
  - ANGIOEDEMA [None]
  - URTICARIA [None]
  - RASH [None]
